FAERS Safety Report 9038890 (Version 1)
Quarter: 2013Q1

REPORT INFORMATION
  Report Type: Report from Study
  Country: US (occurrence: US)
  Receive Date: 20130129
  Receipt Date: 20130129
  Transmission Date: 20140127
  Serious: No
  Sender: FDA-Public Use
  Company Number: US-ABBOTT-12P-163-0931251-00

PATIENT
  Sex: Female
  Weight: 149.82 kg

DRUGS (6)
  1. HUMIRA 40 MG/0.8 ML PEN [Suspect]
     Indication: CROHN^S DISEASE
     Route: 058
     Dates: start: 201101
  2. DEPAKOTE [Concomitant]
     Indication: AFFECTIVE DISORDER
  3. PROZAC [Concomitant]
     Indication: DEPRESSION
  4. RESPERIDONE [Concomitant]
     Indication: TOURETTE^S DISORDER
  5. CLONAZAPAM [Concomitant]
     Indication: AFFECTIVE DISORDER
  6. PRILOSEC [Concomitant]
     Indication: GASTRIC DISORDER

REACTIONS (1)
  - Injection site pain [Recovered/Resolved]
